FAERS Safety Report 13529728 (Version 1)
Quarter: 2017Q2

REPORT INFORMATION
  Report Type: Spontaneous
  Country: GB (occurrence: None)
  Receive Date: 20170508
  Receipt Date: 20170508
  Transmission Date: 20170830
  Serious: Yes (Other)
  Sender: FDA-Public Use
  Company Number: GB2017K2848SPO

PATIENT
  Age: 75 Year
  Sex: Female

DRUGS (12)
  1. RIVASTIGMINE GENERIC (RIVASTIGMINE) UNKNOWN [Suspect]
     Active Substance: RIVASTIGMINE
  2. CEREZYME [Suspect]
     Active Substance: IMIGLUCERASE
     Indication: PRODUCT USED FOR UNKNOWN INDICATION
     Route: 041
     Dates: start: 20170329
  3. LACTULOSE. [Suspect]
     Active Substance: LACTULOSE
     Indication: PRODUCT USED FOR UNKNOWN INDICATION
  4. DOMPERIDONE WORLD (DOMPERIDONE MALEATE) UNKNOWN [Suspect]
     Active Substance: DOMPERIDONE MALEATE
     Dates: end: 20170329
  5. CO-BENELDOPA (BENSERAZIDE HYDROCHLORIDE, LEVODOPA) [Suspect]
     Active Substance: BENSERAZIDE HYDROCHLORIDE\LEVODOPA
     Indication: PRODUCT USED FOR UNKNOWN INDICATION
  6. LANSOPRAZOLE GENERIC (LANSOPRAZOLE) UNKNOWN [Suspect]
     Active Substance: LANSOPRAZOLE
  7. QUETIAPINE GENERIC (QUETIAPINE) UNKNOWN [Suspect]
     Active Substance: QUETIAPINE
  8. ROPINIROLE GENERIC (ROPINIROLE) UNKNOWN [Suspect]
     Active Substance: ROPINIROLE
  9. SENNA [Suspect]
     Active Substance: SENNA LEAF\SENNOSIDES\SENNOSIDES A AND B
     Indication: PRODUCT USED FOR UNKNOWN INDICATION
  10. CYCLIZINE [Suspect]
     Active Substance: CYCLIZINE
     Indication: PRODUCT USED FOR UNKNOWN INDICATION
  11. BISOPROLOL WORLD (BISOPROLOL FUMARATE) UNKNOWN [Suspect]
     Active Substance: BISOPROLOL FUMARATE
  12. CITALOPRAM [Suspect]
     Active Substance: CITALOPRAM HYDROBROMIDE
     Indication: PRODUCT USED FOR UNKNOWN INDICATION

REACTIONS (2)
  - Dizziness [None]
  - Parkinson^s disease [None]
